FAERS Safety Report 24694419 (Version 1)
Quarter: 2024Q4

REPORT INFORMATION
  Report Type: Spontaneous
  Country: CN (occurrence: CN)
  Receive Date: 20241204
  Receipt Date: 20241204
  Transmission Date: 20250114
  Serious: Yes (Other)
  Sender: JOHNSON AND JOHNSON
  Company Number: CN-BAYER-2024A171256

PATIENT
  Age: 74 Year
  Sex: Male

DRUGS (1)
  1. XARELTO [Suspect]
     Active Substance: RIVAROXABAN
     Indication: Acute myocardial infarction
     Dosage: 15 MG, QDO
     Route: 048
     Dates: start: 20241119, end: 20241202

REACTIONS (3)
  - Hepatic enzyme increased [Unknown]
  - Product use in unapproved indication [Unknown]
  - Product prescribing issue [Unknown]

NARRATIVE: CASE EVENT DATE: 20241119
